FAERS Safety Report 9305465 (Version 1)
Quarter: 2013Q2

REPORT INFORMATION
  Report Type: Spontaneous
  Country: US (occurrence: US)
  Receive Date: 20130523
  Receipt Date: 20130523
  Transmission Date: 20140414
  Serious: No
  Sender: FDA-Public Use
  Company Number: US-BAYER-2013-059054

PATIENT
  Sex: Female

DRUGS (3)
  1. ALEVE CAPLET [Suspect]
  2. COENZYME Q10 [Concomitant]
     Dosage: UNK
  3. TUMERIC [Concomitant]
     Dosage: 0.5 MG, UNK

REACTIONS (3)
  - Gastrooesophageal reflux disease [Recovered/Resolved]
  - Abdominal pain upper [None]
  - Musculoskeletal pain [Recovered/Resolved]
